FAERS Safety Report 26132624 (Version 1)
Quarter: 2025Q4

REPORT INFORMATION
  Report Type: Report from Study
  Country: CA (occurrence: CA)
  Receive Date: 20251208
  Receipt Date: 20251208
  Transmission Date: 20260118
  Serious: Yes (Other)
  Sender: ABBVIE
  Company Number: CA-JNJFOC-20250829251

PATIENT
  Age: 83 Year
  Sex: Male

DRUGS (4)
  1. IMBRUVICA [Suspect]
     Active Substance: IBRUTINIB
     Indication: Chronic lymphocytic leukaemia
     Route: 048
  2. IMBRUVICA [Suspect]
     Active Substance: IBRUTINIB
     Indication: Chronic lymphocytic leukaemia
     Route: 048
  3. IMBRUVICA [Suspect]
     Active Substance: IBRUTINIB
     Indication: Chronic lymphocytic leukaemia
     Route: 048
  4. MIDODRINE [Concomitant]
     Active Substance: MIDODRINE
     Indication: Hypotension

REACTIONS (10)
  - Hypertension [Not Recovered/Not Resolved]
  - Incorrect dose administered [Unknown]
  - Dizziness [Not Recovered/Not Resolved]
  - Off label use [Unknown]
  - White blood cell count increased [Unknown]
  - Confusional state [Not Recovered/Not Resolved]
  - Gait disturbance [Not Recovered/Not Resolved]
  - Asthenia [Not Recovered/Not Resolved]
  - Hypotension [Not Recovered/Not Resolved]
  - Dementia [Not Recovered/Not Resolved]
